FAERS Safety Report 4613935-1 (Version None)
Quarter: 2005Q1

REPORT INFORMATION
  Report Type: 
  Country: None (occurrence: None)
  Receive Date: 20050321
  Receipt Date: 20030602
  Transmission Date: 20050727
  Serious: Yes (Other)
  Sender: FDA-Public Use
  Company Number: US-ROCHE-339470

PATIENT
  Age: 12 Year
  Sex: Female
  Weight: 84.8 kg

DRUGS (2)
  1. ACCUTANE [Suspect]
     Route: 048
     Dates: start: 20000918, end: 20001115
  2. ACCUTANE [Suspect]
     Route: 048
     Dates: start: 20001115, end: 20010305

REACTIONS (3)
  - DEPRESSION [None]
  - MIGRAINE [None]
  - SUICIDAL IDEATION [None]
